FAERS Safety Report 5827045-9 (Version None)
Quarter: 2008Q3

REPORT INFORMATION
  Report Type: 
  Country: None (occurrence: None)
  Receive Date: 20080730
  Receipt Date: 20080724
  Transmission Date: 20090109
  Serious: Yes (Disabling)
  Sender: FDA-Public Use
  Company Number: A0739218A

PATIENT
  Age: 10 Year
  Sex: Female

DRUGS (4)
  1. ADVAIR DISKUS 100/50 [Suspect]
     Indication: ASTHMA
     Dosage: 1PUFF TWICE PER DAY
     Route: 055
     Dates: start: 20040101
  2. ALBUTEROL [Concomitant]
  3. SINGULAIR [Concomitant]
  4. IBUPROFEN [Concomitant]

REACTIONS (10)
  - BLOOD GLUCOSE DECREASED [None]
  - CERVICAL VERTEBRAL FRACTURE [None]
  - HAND FRACTURE [None]
  - JOINT DISLOCATION [None]
  - ORAL DISORDER [None]
  - PLANTAR FASCIITIS [None]
  - TREMOR [None]
  - UPPER LIMB FRACTURE [None]
  - VISUAL ACUITY REDUCED [None]
  - WRIST FRACTURE [None]
